FAERS Safety Report 6102081-6 (Version None)
Quarter: 2009Q1

REPORT INFORMATION
  Report Type: 
  Country: None (occurrence: None)
  Receive Date: 20090304
  Receipt Date: 20090223
  Transmission Date: 20090719
  Serious: Yes (Other)
  Sender: FDA-Public Use
  Company Number: US-PFIZER INC-2009153809

PATIENT
  Age: 52 Year
  Sex: Female

DRUGS (13)
  1. MEDROXYPROGESTERONE AND MEDROXYPROGESTERONE ACETATE [Suspect]
     Indication: MENORRHAGIA
     Dosage: 10 MG, 1X/DAY
     Route: 048
     Dates: start: 20081201
  2. LORATADINE [Concomitant]
     Dosage: UNK
  3. IMITREX [Concomitant]
     Dosage: UNK
  4. PROVENTIL [Concomitant]
     Dosage: UNK
  5. HYDROCHLOROTHIAZIDE [Concomitant]
     Dosage: UNK
  6. SINGULAIR [Concomitant]
     Dosage: UNK
  7. COZAAR [Concomitant]
     Dosage: UNK
  8. NEXIUM [Concomitant]
     Dosage: UNK
  9. CLONAZEPAM [Concomitant]
     Dosage: UNK
  10. FLUTICASONE PROPIONATE [Concomitant]
     Dosage: UNK
  11. ADVAIR HFA [Concomitant]
     Dosage: UNK
  12. ECONAZOLE CREAM [Concomitant]
     Dosage: UNK
  13. TRIAMCINOLONE [Concomitant]
     Dosage: UNK

REACTIONS (1)
  - COELIAC DISEASE [None]
